FAERS Safety Report 6385243-2 (Version None)
Quarter: 2009Q4

REPORT INFORMATION
  Report Type: 
  Country: None (occurrence: None)
  Receive Date: 20091002
  Receipt Date: 20090629
  Transmission Date: 20100525
  Serious: No
  Sender: FDA-Public Use
  Company Number: US-ASTRAZENECA-2007UW20628

PATIENT
  Age: 65 Year
  Sex: Female
  Weight: 69.4 kg

DRUGS (4)
  1. ARIMIDEX [Suspect]
     Indication: BREAST CANCER
     Route: 048
     Dates: start: 20060101
  2. LIPITOR [Concomitant]
  3. MULTI-VITAMINS [Concomitant]
  4. ASPIRIN [Concomitant]

REACTIONS (2)
  - ALOPECIA [None]
  - BREAST CANCER [None]
